FAERS Safety Report 17426352 (Version 1)
Quarter: 2020Q1

REPORT INFORMATION
  Report Type: Spontaneous
  Country: GB (occurrence: GB)
  Receive Date: 20200218
  Receipt Date: 20200218
  Transmission Date: 20200409
  Serious: Yes (Other)
  Sender: FDA-Public Use
  Company Number: GB-TEVA-2020-GB-1186648

PATIENT
  Age: 63 Year
  Sex: Female
  Weight: 96 kg

DRUGS (4)
  1. DOXAZOSIN [Concomitant]
     Active Substance: DOXAZOSIN MESYLATE
     Dosage: 1 DOSAGE FORM
     Dates: start: 20191106
  2. RAMIPRIL. [Suspect]
     Active Substance: RAMIPRIL
     Dosage: 5 MG
     Dates: start: 20190702
  3. LEVOTHYROXINE. [Concomitant]
     Active Substance: LEVOTHYROXINE
     Dosage: 1 DOSAGE FORM EACH MORNING
     Dates: start: 20190702
  4. FEXOFENADINE [Concomitant]
     Active Substance: FEXOFENADINE HYDROCHLORIDE
     Dosage: 1 DOSAGE FORM
     Dates: start: 20191203, end: 20200102

REACTIONS (2)
  - Urticaria [Recovered/Resolved]
  - Swelling face [Recovered/Resolved]
